FAERS Safety Report 9282588 (Version 5)
Quarter: 2013Q3

REPORT INFORMATION
  Report Type: Report from Study
  Country: AU (occurrence: AU)
  Receive Date: 20130510
  Receipt Date: 20130821
  Transmission Date: 20140515
  Serious: Yes (Death, Hospitalization)
  Sender: FDA-Public Use
  Company Number: PHHY2013AU043480

PATIENT
  Age: 82 Year
  Sex: Male
  Weight: 53 kg

DRUGS (6)
  1. SANDOSTATIN LAR [Suspect]
     Indication: CARCINOID SYNDROME
     Dosage: 30 MG, UNK
     Route: 030
     Dates: start: 2008
  2. WARFARIN [Concomitant]
     Indication: DEEP VEIN THROMBOSIS
     Dosage: UNK UKN, DAILY
     Route: 048
     Dates: start: 2003
  3. PARACETAMOL [Concomitant]
     Indication: HYPERTENSION
     Dosage: 2 DF, PRN
     Route: 048
  4. SOTALOL [Concomitant]
     Indication: HYPERTENSION
     Dosage: 40 MG, DAILY
     Route: 048
     Dates: start: 2009
  5. PERINDOPRIL [Concomitant]
     Indication: HYPERTENSION
     Dosage: 50 MG, DAILY
     Route: 048
  6. SPIRONOLACTONE [Concomitant]
     Indication: HYPERTENSION
     Dosage: UNK UKN, UNK
     Route: 048

REACTIONS (7)
  - Death [Fatal]
  - Fall [Recovering/Resolving]
  - Contusion [Recovering/Resolving]
  - Periorbital contusion [Recovering/Resolving]
  - Weight decreased [Recovering/Resolving]
  - Gait disturbance [Recovering/Resolving]
  - Asthenia [Recovering/Resolving]
